FAERS Safety Report 10021402 (Version 1)
Quarter: 2014Q1

REPORT INFORMATION
  Report Type: Spontaneous
  Country: US (occurrence: None)
  Receive Date: 20140318
  Receipt Date: 20140318
  Transmission Date: 20141002
  Serious: Yes (Other)
  Sender: FDA-Public Use
  Company Number: None

PATIENT
  Age: 71 Year
  Sex: Female
  Weight: 97.52 kg

DRUGS (2)
  1. LEVAQUIN [Suspect]
     Indication: STAPHYLOCOCCAL INFECTION
     Dosage: 1 PILL
     Route: 048
     Dates: start: 20140221, end: 20140223
  2. LEVAQUIN [Suspect]
     Indication: ABSCESS
     Dosage: 1 PILL
     Route: 048
     Dates: start: 20140221, end: 20140223

REACTIONS (2)
  - Arthralgia [None]
  - Musculoskeletal pain [None]
